FAERS Safety Report 9304180 (Version 2)
Quarter: 2013Q2

REPORT INFORMATION
  Report Type: Spontaneous
  Country: JP (occurrence: JP)
  Receive Date: 20130522
  Receipt Date: 20130530
  Transmission Date: 20140414
  Serious: Yes (Hospitalization, Disabling, Other)
  Sender: FDA-Public Use
  Company Number: JP-ASTRAZENECA-2013SE23065

PATIENT
  Age: 77 Year
  Sex: Male
  Weight: 59 kg

DRUGS (7)
  1. CASODEX [Suspect]
     Indication: PROSTATE CANCER
     Route: 048
     Dates: start: 2010, end: 20130403
  2. BLOPRESS [Suspect]
     Indication: HYPERTENSION
     Route: 048
     Dates: end: 20130403
  3. ZOLADEX [Suspect]
     Indication: PROSTATE CANCER
     Route: 058
     Dates: start: 2010, end: 201301
  4. AMLODIPINE (NON AZ PRODUCT) [Suspect]
     Indication: HYPERTENSION
     Route: 048
     Dates: end: 20130403
  5. FEBURIC [Suspect]
     Indication: HYPERURICAEMIA
     Route: 048
     Dates: end: 20130403
  6. VESICARE [Suspect]
     Indication: BENIGN PROSTATIC HYPERPLASIA
     Route: 048
     Dates: start: 2010, end: 20130403
  7. HARNAL [Suspect]
     Indication: BENIGN PROSTATIC HYPERPLASIA
     Route: 048
     Dates: start: 2010, end: 20130403

REACTIONS (4)
  - Respiratory failure [Unknown]
  - Hypokalaemia [Unknown]
  - Interstitial lung disease [Recovering/Resolving]
  - Alveolitis allergic [Unknown]
